FAERS Safety Report 6649940-3 (Version None)
Quarter: 2010Q1

REPORT INFORMATION
  Report Type: 
  Country: None (occurrence: None)
  Receive Date: 20100325
  Receipt Date: 20100317
  Transmission Date: 20100710
  Serious: No
  Sender: FDA-Public Use
  Company Number: US-BIOGENIDEC-2010BI009224

PATIENT
  Sex: Female

DRUGS (1)
  1. AVONEX [Suspect]
     Indication: MULTIPLE SCLEROSIS
     Route: 030
     Dates: start: 20081210

REACTIONS (6)
  - ABASIA [None]
  - AGRAPHIA [None]
  - BLINDNESS [None]
  - MEMORY IMPAIRMENT [None]
  - REFLEXES ABNORMAL [None]
  - TOOTH DISORDER [None]
